FAERS Safety Report 11115088 (Version 1)
Quarter: 2015Q2

REPORT INFORMATION
  Report Type: Spontaneous
  Country: US (occurrence: None)
  Receive Date: 20150514
  Receipt Date: 20150514
  Transmission Date: 20150821
  Serious: Yes (Disabling)
  Sender: FDA-Public Use
  Company Number: None

PATIENT
  Age: 41 Year
  Sex: Male
  Weight: 111.13 kg

DRUGS (3)
  1. ALLEGRA [Concomitant]
     Active Substance: FEXOFENADINE HYDROCHLORIDE
  2. MULTIVITAMIN [Concomitant]
     Active Substance: VITAMINS
  3. INDOCIN [Suspect]
     Active Substance: INDOMETHACIN\INDOMETHACIN SODIUM
     Indication: INFLAMMATION
     Route: 048
     Dates: start: 20150304, end: 20150325

REACTIONS (4)
  - Fatigue [None]
  - Nervous system disorder [None]
  - Vision blurred [None]
  - Tinnitus [None]

NARRATIVE: CASE EVENT DATE: 20150325
